FAERS Safety Report 10872665 (Version 1)
Quarter: 2015Q1

REPORT INFORMATION
  Report Type: Spontaneous
  Country: US (occurrence: US)
  Receive Date: 20150227
  Receipt Date: 20150227
  Transmission Date: 20150721
  Serious: Yes (Hospitalization)
  Sender: FDA-Public Use
  Company Number: US-ACCORD-028881

PATIENT
  Age: 16 Year
  Sex: Female

DRUGS (6)
  1. QUETIAPINE [Suspect]
     Active Substance: QUETIAPINE
     Indication: BIPOLAR DISORDER
     Dosage: 400 MG AT BEDTIME, DISCONTINUED DUE TO NO RESPONSE.?RESTARTED AND DOSE INCREASED TO 800 MG DAILY.
  2. BENZATROPINE [Suspect]
     Active Substance: BENZTROPINE
     Indication: PRODUCT USED FOR UNKNOWN INDICATION
  3. CLONAZEPAM. [Suspect]
     Active Substance: CLONAZEPAM
     Indication: PRODUCT USED FOR UNKNOWN INDICATION
  4. VALPROIC ACID. [Suspect]
     Active Substance: VALPROIC ACID
     Indication: BIPOLAR DISORDER
  5. OLANZAPINE. [Suspect]
     Active Substance: OLANZAPINE
     Indication: BIPOLAR DISORDER
     Dosage: 5 MG AT BEDTIME.?INITIALLY RECEIVED 20 MG DAILY.
  6. LORAZEPAM. [Suspect]
     Active Substance: LORAZEPAM
     Indication: BIPOLAR DISORDER

REACTIONS (7)
  - Hypertension [Unknown]
  - Dysarthria [Unknown]
  - Autonomic nervous system imbalance [Unknown]
  - Mydriasis [Unknown]
  - Tachycardia [Unknown]
  - Confusional state [Unknown]
  - No therapeutic response [Unknown]
